FAERS Safety Report 14946909 (Version 1)
Quarter: 2018Q2

REPORT INFORMATION
  Report Type: Spontaneous
  Country: BR (occurrence: BR)
  Receive Date: 20180529
  Receipt Date: 20180529
  Transmission Date: 20180711
  Serious: Yes (Other)
  Sender: FDA-Public Use
  Company Number: BR-MYLANLABS-2018M1034336

PATIENT
  Sex: Female
  Weight: 60 kg

DRUGS (1)
  1. OLANZAPINE. [Suspect]
     Active Substance: OLANZAPINE
     Indication: SCHIZOPHRENIA
     Route: 065

REACTIONS (4)
  - Cataract diabetic [Unknown]
  - Weight increased [Unknown]
  - Diabetes mellitus [Recovering/Resolving]
  - Hypertriglyceridaemia [Recovering/Resolving]
